FAERS Safety Report 11782811 (Version 1)
Quarter: 2015Q4

REPORT INFORMATION
  Report Type: Report from Study
  Country: AU (occurrence: AU)
  Receive Date: 20151127
  Receipt Date: 20151127
  Transmission Date: 20160305
  Serious: Yes (Other)
  Sender: FDA-Public Use
  Company Number: AU-BIOGENIDEC-2015BI155670

PATIENT
  Age: 45 Year
  Sex: Female

DRUGS (3)
  1. ENDEP [Concomitant]
     Active Substance: AMITRIPTYLINE HYDROCHLORIDE
  2. TECFIDERA [Suspect]
     Active Substance: DIMETHYL FUMARATE
     Indication: MULTIPLE SCLEROSIS
     Route: 048
     Dates: start: 20140523
  3. LYRICA [Concomitant]
     Active Substance: PREGABALIN

REACTIONS (7)
  - Ligament sprain [Unknown]
  - Pain [Unknown]
  - Thrombosis [Unknown]
  - Pulmonary thrombosis [Unknown]
  - White blood cell count decreased [Not Recovered/Not Resolved]
  - Ankle fracture [Unknown]
  - Swelling [Unknown]

NARRATIVE: CASE EVENT DATE: 201505
